FAERS Safety Report 4785362-8 (Version None)
Quarter: 2005Q4

REPORT INFORMATION
  Report Type: 
  Country: None (occurrence: None)
  Receive Date: 20051003
  Receipt Date: 20050111
  Transmission Date: 20060501
  Serious: Yes (Hospitalization)
  Sender: FDA-Public Use
  Company Number: IT-SOLVAY-00305000083

PATIENT
  Age: 55 Year
  Sex: Male

DRUGS (5)
  1. LEXOTAN [Concomitant]
     Indication: ILL-DEFINED DISORDER
     Dosage: DAILY DOSE: 10 DROP(S)
     Route: 048
  2. MAVERAL [Suspect]
     Indication: ILL-DEFINED DISORDER
     Dosage: DAILY DOSE: 50 MILLIGRAM(S)
     Route: 048
     Dates: start: 20041028, end: 20041206
  3. OMEPRAZOLE [Suspect]
     Indication: ILL-DEFINED DISORDER
     Dosage: DAILY DOSE: 20 MILLIGRAM(S)
     Route: 048
     Dates: start: 20041028, end: 20041206
  4. BENERVA [Concomitant]
     Indication: ILL-DEFINED DISORDER
     Dosage: DAILY DOSE: 100 MILLIGRAM(S)
     Route: 030
     Dates: start: 20041128, end: 20041128
  5. LEDERFOLIN [Concomitant]
     Indication: ILL-DEFINED DISORDER
     Dosage: DAILY DOSE: 7.5 MILLIGRAM(S)
     Route: 048

REACTIONS (1)
  - BURNS THIRD DEGREE [None]
